FAERS Safety Report 23147555 (Version 3)
Quarter: 2023Q4

REPORT INFORMATION
  Report Type: Spontaneous
  Country: US (occurrence: US)
  Receive Date: 20231106
  Receipt Date: 20231228
  Transmission Date: 20240109
  Serious: Yes (Other)
  Sender: FDA-Public Use
  Company Number: US-BRISTOL-MYERS SQUIBB COMPANY-2023-157586

PATIENT
  Age: 76 Year
  Sex: Female
  Weight: 68.95 kg

DRUGS (1)
  1. ONUREG [Suspect]
     Active Substance: AZACITIDINE
     Indication: Acute myeloid leukaemia
     Dosage: FREQ- 14D OF 28DAYS
     Route: 048
     Dates: start: 20231001

REACTIONS (3)
  - Nausea [Recovering/Resolving]
  - Vomiting [Unknown]
  - Diarrhoea [Unknown]
